FAERS Safety Report 10568120 (Version 4)
Quarter: 2015Q3

REPORT INFORMATION
  Report Type: Report from Study
  Country: CA (occurrence: CA)
  Receive Date: 20141106
  Receipt Date: 20150710
  Transmission Date: 20151125
  Serious: Yes (Hospitalization, Other)
  Sender: FDA-Public Use
  Company Number: PHHY2012CA123865

PATIENT
  Age: 76 Year
  Sex: Female

DRUGS (2)
  1. SANDOSTATIN [Suspect]
     Active Substance: OCTREOTIDE ACETATE
     Indication: CARCINOID TUMOUR PULMONARY
     Dosage: FOR 7 DAYS
     Route: 058
     Dates: start: 20121206, end: 20121212
  2. SANDOSTATIN LAR DEPOT [Suspect]
     Active Substance: OCTREOTIDE ACETATE
     Indication: CARCINOID TUMOUR PULMONARY
     Dosage: 20 MG, QMO (ONCE A MONTH)
     Route: 030
     Dates: start: 20121219

REACTIONS (18)
  - Neck pain [Unknown]
  - Metastasis [Unknown]
  - Contusion [Recovering/Resolving]
  - Fatigue [Unknown]
  - Metastases to kidney [Unknown]
  - Hypertension [Unknown]
  - Metastases to pelvis [Unknown]
  - Arthralgia [Recovered/Resolved]
  - Eyelid bleeding [Unknown]
  - Poor quality sleep [Unknown]
  - Eye injury [Unknown]
  - Pain in extremity [Unknown]
  - Pain [Unknown]
  - Arthralgia [Unknown]
  - Musculoskeletal pain [Not Recovered/Not Resolved]
  - Metastases to liver [Unknown]
  - Fall [Unknown]
  - Osteoarthritis [Unknown]

NARRATIVE: CASE EVENT DATE: 20130909
